FAERS Safety Report 19763650 (Version 1)
Quarter: 2021Q3

REPORT INFORMATION
  Report Type: Spontaneous
  Country: US (occurrence: US)
  Receive Date: 20210830
  Receipt Date: 20210830
  Transmission Date: 20211014
  Serious: Yes (Life-Threatening, Hospitalization, Other)
  Sender: FDA-Public Use
  Company Number: US-ASTRAZENECA-2021A702151

PATIENT
  Age: 62 Year
  Sex: Male

DRUGS (3)
  1. BRILINTA [Suspect]
     Active Substance: TICAGRELOR
     Route: 048
     Dates: start: 2012
  2. ASPIRIN. [Concomitant]
     Active Substance: ASPIRIN
  3. OXYCODONE [Concomitant]
     Active Substance: OXYCODONE

REACTIONS (17)
  - Scar [Not Recovered/Not Resolved]
  - Walking disability [Recovering/Resolving]
  - Peripheral swelling [Unknown]
  - Gallbladder disorder [Recovered/Resolved]
  - Visual acuity reduced [Recovered/Resolved]
  - Limb discomfort [Recovering/Resolving]
  - Contusion [Not Recovered/Not Resolved]
  - Coronary artery occlusion [Unknown]
  - Haemorrhage [Recovered/Resolved]
  - Pneumonia [Recovering/Resolving]
  - Cyst [Unknown]
  - Pain [Recovering/Resolving]
  - Cataract [Unknown]
  - Neuropathy peripheral [Unknown]
  - Eye movement disorder [Not Recovered/Not Resolved]
  - Diaphragmatic paralysis [Not Recovered/Not Resolved]
  - Face injury [Recovering/Resolving]

NARRATIVE: CASE EVENT DATE: 2012
